FAERS Safety Report 23542639 (Version 1)
Quarter: 2024Q1

REPORT INFORMATION
  Report Type: Spontaneous
  Country: US (occurrence: US)
  Receive Date: 20240220
  Receipt Date: 20240220
  Transmission Date: 20240409
  Serious: No
  Sender: FDA-Public Use
  Company Number: US-ALKEM LABORATORIES LIMITED-US-ALKEM-2023-09221

PATIENT

DRUGS (1)
  1. TRIAMCINOLONE ACETONIDE [Suspect]
     Active Substance: TRIAMCINOLONE ACETONIDE
     Indication: Granuloma annulare
     Dosage: UNK
     Route: 065

REACTIONS (1)
  - Drug ineffective [Unknown]
